FAERS Safety Report 14695988 (Version 1)
Quarter: 2018Q1

REPORT INFORMATION
  Report Type: Spontaneous
  Country: US (occurrence: US)
  Receive Date: 20180329
  Receipt Date: 20180329
  Transmission Date: 20180509
  Serious: No
  Sender: FDA-Public Use
  Company Number: US-BAYER-2018-061529

PATIENT
  Age: 28 Year
  Sex: Female

DRUGS (2)
  1. SKYLA [Suspect]
     Active Substance: LEVONORGESTREL
     Indication: MENORRHAGIA
  2. SKYLA [Suspect]
     Active Substance: LEVONORGESTREL
     Indication: CONTRACEPTION
     Dosage: 14 MCG/24HR, CONT
     Route: 015
     Dates: start: 20171129

REACTIONS (8)
  - Oscillopsia [Not Recovered/Not Resolved]
  - Scintillating scotoma [Not Recovered/Not Resolved]
  - Photopsia [Not Recovered/Not Resolved]
  - Hypoaesthesia [Not Recovered/Not Resolved]
  - Nausea [Not Recovered/Not Resolved]
  - Vertigo [Not Recovered/Not Resolved]
  - Migraine without aura [None]
  - Migraine with aura [Not Recovered/Not Resolved]

NARRATIVE: CASE EVENT DATE: 201712
